FAERS Safety Report 6994140-0 (Version None)
Quarter: 2010Q3

REPORT INFORMATION
  Report Type: 
  Country: None (occurrence: None)
  Receive Date: 20100917
  Receipt Date: 20100715
  Transmission Date: 20110219
  Serious: Yes (Other)
  Sender: FDA-Public Use
  Company Number: US-ASTRAZENECA-2010SE33051

PATIENT
  Age: 30 Year
  Sex: Female

DRUGS (10)
  1. SEROQUEL [Suspect]
     Indication: BIPOLAR I DISORDER
     Route: 048
     Dates: end: 20080801
  2. SEROQUEL [Suspect]
     Indication: POST-TRAUMATIC STRESS DISORDER
     Route: 048
     Dates: end: 20080801
  3. SEROQUEL [Suspect]
     Route: 048
     Dates: start: 20100609
  4. SEROQUEL [Suspect]
     Route: 048
     Dates: start: 20100609
  5. SEROQUEL [Suspect]
     Route: 048
     Dates: start: 20100609
  6. SEROQUEL [Suspect]
     Route: 048
     Dates: start: 20100609
  7. TOPROL-XL [Concomitant]
     Indication: ARRHYTHMIA
  8. NORCO [Concomitant]
     Indication: PAIN
  9. FIORICET [Concomitant]
     Indication: MIGRAINE
  10. KLONOPIN [Concomitant]
     Dosage: THREE TIMES A DAY

REACTIONS (5)
  - CONVULSION [None]
  - DRUG DOSE OMISSION [None]
  - OEDEMA [None]
  - PROTEINURIA [None]
  - SEDATION [None]
